FAERS Safety Report 9642124 (Version 1)
Quarter: 2013Q4

REPORT INFORMATION
  Report Type: Spontaneous
  Country: FR (occurrence: FR)
  Receive Date: 20131023
  Receipt Date: 20131023
  Transmission Date: 20140711
  Serious: Yes (Other)
  Sender: FDA-Public Use
  Company Number: FR-BAXTER-2013BAX041047

PATIENT
  Sex: 0

DRUGS (1)
  1. HOLOXAN 2 G, LYOPHILISAT POUR SOLUTION INJECTABLE [Suspect]
     Indication: NEUROFIBROMATOSIS
     Route: 065

REACTIONS (1)
  - Drug ineffective [Unknown]
